FAERS Safety Report 7364841-3 (Version None)
Quarter: 2011Q1

REPORT INFORMATION
  Report Type: 
  Country: None (occurrence: None)
  Receive Date: 20110316
  Receipt Date: 20110316
  Transmission Date: 20110831
  Serious: No
  Sender: FDA-Public Use
  Company Number: None

PATIENT
  Age: 62 Year
  Sex: Male
  Weight: 70.7 kg

DRUGS (1)
  1. ONDANSETRON [Suspect]
     Indication: NAUSEA
     Dosage: 4 MG QID IV
     Route: 042
     Dates: start: 20110126, end: 20110126

REACTIONS (4)
  - UROSEPSIS [None]
  - SEPTIC SHOCK [None]
  - RESPIRATORY ARREST [None]
  - HYPOTENSION [None]
